FAERS Safety Report 21149337 (Version 2)
Quarter: 2022Q3

REPORT INFORMATION
  Report Type: Spontaneous
  Country: US (occurrence: US)
  Receive Date: 20220729
  Receipt Date: 20220819
  Transmission Date: 20221027
  Serious: Yes (Other)
  Sender: FDA-Public Use
  Company Number: US-BOIRON-202200373

PATIENT
  Age: 63 Year
  Sex: Female
  Weight: 79.365 kg

DRUGS (2)
  1. HOMEOPATHICS [Suspect]
     Active Substance: HOMEOPATHICS
     Indication: Contusion
     Dosage: PEA SIZE AMOUNT AND MAYBE 2 PEAS ON BRUISE ON UPPER RIGHT THIGH, TWICE A DAY
     Route: 061
     Dates: start: 20220627
  2. TYLENOL [Concomitant]
     Active Substance: ACETAMINOPHEN

REACTIONS (3)
  - Angioedema [Recovered/Resolved]
  - Peripheral swelling [Recovered/Resolved]
  - Skin exfoliation [Recovered/Resolved]

NARRATIVE: CASE EVENT DATE: 20220629
